FAERS Safety Report 20559904 (Version 1)
Quarter: 2022Q1

REPORT INFORMATION
  Report Type: Report from Study
  Country: IN (occurrence: IN)
  Receive Date: 20220307
  Receipt Date: 20220307
  Transmission Date: 20220424
  Serious: Yes (Other)
  Sender: FDA-Public Use
  Company Number: IN-NOVARTISPH-NVSC2022IN052286

PATIENT
  Age: 71 Year
  Sex: Female

DRUGS (1)
  1. TASIGNA [Suspect]
     Active Substance: NILOTINIB
     Indication: Chronic myeloid leukaemia
     Dosage: 400 MG, BID
     Route: 065
     Dates: start: 20180927, end: 20220215

REACTIONS (1)
  - Paralysis [Unknown]

NARRATIVE: CASE EVENT DATE: 20220215
